FAERS Safety Report 8120687-X (Version None)
Quarter: 2012Q1

REPORT INFORMATION
  Report Type: 
  Country: None (occurrence: None)
  Receive Date: 20120207
  Receipt Date: 20120130
  Transmission Date: 20120608
  Serious: Yes (Other)
  Sender: FDA-Public Use
  Company Number: US-BAYER-2011-061190

PATIENT
  Age: 40 Year
  Sex: Female
  Weight: 80.726 kg

DRUGS (6)
  1. ASPIRIN [Concomitant]
  2. PLAVIX [Concomitant]
  3. VITAMIN TAB [Concomitant]
  4. LEVORA 0.15/30-21 [Concomitant]
  5. YASMIN [Suspect]
     Indication: CONTRACEPTION
     Dosage: UNK
     Dates: start: 20070101, end: 20090101
  6. YAZ [Suspect]
     Indication: CONTRACEPTION
     Dosage: UNK
     Dates: start: 20070101, end: 20090101

REACTIONS (6)
  - PULMONARY EMBOLISM [None]
  - CEREBRAL THROMBOSIS [None]
  - DEEP VEIN THROMBOSIS [None]
  - CHOLECYSTECTOMY [None]
  - MENTAL DISORDER [None]
  - PAIN [None]
